FAERS Safety Report 6092504-3 (Version None)
Quarter: 2009Q1

REPORT INFORMATION
  Report Type: 
  Country: None (occurrence: None)
  Receive Date: 20090225
  Receipt Date: 20090216
  Transmission Date: 20090719
  Serious: Yes (Other)
  Sender: FDA-Public Use
  Company Number: GB-ABBOTT-09P-167-0499966-00

PATIENT
  Sex: Female
  Weight: 42.8 kg

DRUGS (1)
  1. HUMIRA [Suspect]
     Indication: CROHN'S DISEASE
     Dates: start: 20090112

REACTIONS (3)
  - CHEST DISCOMFORT [None]
  - FEAR [None]
  - GASTROOESOPHAGEAL REFLUX DISEASE [None]
